FAERS Safety Report 5414920-2 (Version None)
Quarter: 2007Q3

REPORT INFORMATION
  Report Type: 
  Country: None (occurrence: None)
  Receive Date: 20070813
  Receipt Date: 20070726
  Transmission Date: 20080115
  Serious: Yes (Hospitalization)
  Sender: FDA-Public Use
  Company Number: 6032206

PATIENT
  Age: 71 Year
  Sex: Female

DRUGS (3)
  1. WYTENS (TABLET) (HYDROCHLOROTHIAZIDE, BISOPROLOL FUMARATE) [Suspect]
     Indication: HYPERTENSION
     Dosage: ORAL
     Route: 048
     Dates: start: 20061007, end: 20070222
  2. RABEPRAZOLE SODIUM [Suspect]
     Indication: DRUG USE FOR UNKNOWN INDICATION
     Dosage: ORAL
     Route: 048
     Dates: start: 20061211, end: 20070201
  3. XANAX [Suspect]
     Indication: DRUG USE FOR UNKNOWN INDICATION
     Dosage: 0,125 MG (0,1125 MG, 1 IN 1 D) ORAL
     Route: 048
     Dates: start: 20061211

REACTIONS (7)
  - ANAEMIA HAEMOLYTIC AUTOIMMUNE [None]
  - ANTIPHOSPHOLIPID SYNDROME [None]
  - COOMBS POSITIVE HAEMOLYTIC ANAEMIA [None]
  - CYTOLYTIC HEPATITIS [None]
  - DOUBLE STRANDED DNA ANTIBODY [None]
  - HYPERPROTEINAEMIA [None]
  - SYSTEMIC LUPUS ERYTHEMATOSUS [None]
